FAERS Safety Report 16272498 (Version 1)
Quarter: 2019Q2

REPORT INFORMATION
  Report Type: Spontaneous
  Country: CN (occurrence: CN)
  Receive Date: 20190506
  Receipt Date: 20190506
  Transmission Date: 20190711
  Serious: Yes (Hospitalization)
  Sender: FDA-Public Use
  Company Number: CN-ROCHE-2312993

PATIENT
  Age: 70 Year

DRUGS (1)
  1. LUCENTIS [Suspect]
     Active Substance: RANIBIZUMAB
     Indication: ANTIANGIOGENIC THERAPY
     Dosage: UNK
     Route: 031

REACTIONS (1)
  - Cerebral haemorrhage [Unknown]
